FAERS Safety Report 9609491 (Version 1)
Quarter: 2013Q4

REPORT INFORMATION
  Report Type: Spontaneous
  Country: US (occurrence: US)
  Receive Date: 20131009
  Receipt Date: 20131009
  Transmission Date: 20140711
  Serious: No
  Sender: FDA-Public Use
  Company Number: US-PURDUE-USA-2012-0095171

PATIENT
  Age: 38 Year
  Sex: Male

DRUGS (1)
  1. BUTRANS [Suspect]
     Indication: NECK PAIN
     Dosage: 10 MCG, UNK
     Route: 062
     Dates: start: 20121026, end: 20121027

REACTIONS (7)
  - Hypersensitivity [Unknown]
  - Application site hypoaesthesia [Unknown]
  - Application site pain [Unknown]
  - Hypoaesthesia oral [Unknown]
  - Dyspnoea [Unknown]
  - Insomnia [Unknown]
  - Confusional state [Unknown]
